FAERS Safety Report 24434772 (Version 1)
Quarter: 2024Q4

REPORT INFORMATION
  Report Type: Spontaneous
  Country: NL (occurrence: NL)
  Receive Date: 20241014
  Receipt Date: 20241014
  Transmission Date: 20250114
  Serious: Yes (Other)
  Sender: TEVA
  Company Number: None

PATIENT
  Age: 71 Year
  Sex: Female
  Weight: 73 kg

DRUGS (10)
  1. CLOBETASOL [Suspect]
     Active Substance: CLOBETASOL
     Indication: Lichen sclerosus
     Dosage: THEN 2 WEEKS A DAY. THEN REDUCE FURTHER: BRAND NAME NOT SPECIFIED
     Route: 065
  2. CLOBETASOL [Suspect]
     Active Substance: CLOBETASOL
     Indication: Lichen sclerosus
     Dosage: 2 WEEKS ONCE A DAY, THEN 2 WEEKS EVERY OTHER DAY, FURTHER REDUCING/ BRAND NAME NOT SPECIFIED
     Route: 065
     Dates: start: 20240628, end: 20240723
  3. CARBOPLATIN [Concomitant]
     Active Substance: CARBOPLATIN
     Indication: Product used for unknown indication
     Dosage: 1 MG/MG (MILLIGRAM PER MILLIGRAM): INFUUS / BRAND NAME NOT SPECIFIED
     Route: 065
  4. PACLITAXEL [Concomitant]
     Active Substance: PACLITAXEL
     Indication: Product used for unknown indication
     Dosage: 1 MG/MG (MILLIGRAM PER MILLIGRAM): PACLITAXEL INFUUS / BRAND NAME NOT SPECIFIED
     Route: 065
  5. CARBASPIRIN CALCIUM [Concomitant]
     Active Substance: CARBASPIRIN CALCIUM
     Indication: Product used for unknown indication
     Dosage: BRAND NAME NOT SPECIFIED
     Route: 065
  6. PEMBROLIZUMAB [Concomitant]
     Active Substance: PEMBROLIZUMAB
     Indication: Product used for unknown indication
     Dosage: 1 MG/MG (MILLIGRAM PER MILLIGRAM): INFUUS / BRAND NAME NOT SPECIFIED
     Route: 065
  7. AMLODIPINE [Concomitant]
     Active Substance: AMLODIPINE BESYLATE
     Indication: Product used for unknown indication
     Dosage: BRAND NAME NOT SPECIFIED
     Route: 065
  8. BISOPROLOL [Concomitant]
     Active Substance: BISOPROLOL\BISOPROLOL FUMARATE
     Indication: Product used for unknown indication
     Dosage: BRAND NAME NOT SPECIFIED
     Route: 065
  9. METFORMIN HYDROCHLORIDE [Concomitant]
     Active Substance: METFORMIN HYDROCHLORIDE
     Indication: Product used for unknown indication
     Dosage: BRAND NAME NOT SPECIFIED
     Route: 065
  10. SIMVASTATIN [Concomitant]
     Active Substance: SIMVASTATIN
     Indication: Product used for unknown indication
     Dosage: BRAND NAME NOT SPECIFIED
     Route: 065

REACTIONS (1)
  - Tertiary adrenal insufficiency [Recovered/Resolved]
